FAERS Safety Report 12138767 (Version 1)
Quarter: 2016Q1

REPORT INFORMATION
  Report Type: Report from Study
  Country: GB (occurrence: GB)
  Receive Date: 20160302
  Receipt Date: 20160302
  Transmission Date: 20160526
  Serious: Yes (Hospitalization)
  Sender: FDA-Public Use
  Company Number: GB-COVIS PHARMA S.A.R.L.-2016COV00002

PATIENT
  Age: 60 Year
  Sex: Female

DRUGS (7)
  1. RILUZOLE. [Suspect]
     Active Substance: RILUZOLE
     Indication: MULTIPLE SCLEROSIS
     Dosage: 1 TABLETS, 1X/DAY
     Route: 048
     Dates: start: 20151212, end: 20160115
  2. CINNARIZINE [Concomitant]
     Active Substance: CINNARIZINE
     Dosage: UNK
     Dates: start: 20160129, end: 201602
  3. FLUOXETINE [Suspect]
     Active Substance: FLUOXETINE HYDROCHLORIDE
  4. NIFEDIPINE. [Concomitant]
     Active Substance: NIFEDIPINE
     Dosage: 5 MG, 1X/DAY
     Route: 048
     Dates: start: 2013, end: 201602
  5. RILUZOLE. [Suspect]
     Active Substance: RILUZOLE
     Dosage: 1 TABLETS, 2X/DAY
     Route: 048
     Dates: start: 20160116, end: 20160202
  6. AMILORIDE [Suspect]
     Active Substance: AMILORIDE
  7. AMITRIPTYLINE [Concomitant]
     Active Substance: AMITRIPTYLINE
     Dosage: 100 ?G, UNK
     Route: 048
     Dates: start: 1995, end: 201602

REACTIONS (13)
  - Agitation [Unknown]
  - Rash [Unknown]
  - Dehydration [Unknown]
  - Toxicity to various agents [Not Recovered/Not Resolved]
  - Drug interaction [Recovered/Resolved]
  - Dizziness [Not Recovered/Not Resolved]
  - Urinary retention [Unknown]
  - Serotonin syndrome [Not Recovered/Not Resolved]
  - Mydriasis [Unknown]
  - Dry skin [Unknown]
  - Vertigo [Not Recovered/Not Resolved]
  - Confusional state [Unknown]
  - Aggression [Unknown]

NARRATIVE: CASE EVENT DATE: 2016
